FAERS Safety Report 21627730 (Version 1)
Quarter: 2022Q4

REPORT INFORMATION
  Report Type: Spontaneous
  Country: AT (occurrence: AT)
  Receive Date: 20221122
  Receipt Date: 20221122
  Transmission Date: 20230112
  Serious: Yes (Other)
  Sender: FDA-Public Use
  Company Number: AT-PFIZER INC-PV202200105422

PATIENT
  Age: 4 Year
  Sex: Male

DRUGS (2)
  1. CARBOPLATIN [Suspect]
     Active Substance: CARBOPLATIN
     Dosage: 9350 MG/M2
  2. VINCRISTINE [Suspect]
     Active Substance: VINCRISTINE
     Dosage: 51 MG/M2

REACTIONS (1)
  - Renal impairment [Unknown]
